FAERS Safety Report 14871599 (Version 4)
Quarter: 2019Q3

REPORT INFORMATION
  Report Type: Spontaneous
  Country: US (occurrence: US)
  Receive Date: 20180509
  Receipt Date: 20190719
  Transmission Date: 20191004
  Serious: Yes (Other)
  Sender: FDA-Public Use
  Company Number: US-ASTRAZENECA-2018SE52974

PATIENT
  Age: 20277 Day
  Sex: Female

DRUGS (31)
  1. VIMOVO [Suspect]
     Active Substance: ESOMEPRAZOLE MAGNESIUM\NAPROXEN
     Route: 048
  2. PRILOSEC [Suspect]
     Active Substance: OMEPRAZOLE MAGNESIUM
     Indication: GASTROOESOPHAGEAL REFLUX DISEASE
     Dosage: GENERIC
     Route: 065
  3. PRILOSEC OTC [Suspect]
     Active Substance: OMEPRAZOLE MAGNESIUM
     Indication: GASTROOESOPHAGEAL REFLUX DISEASE
     Route: 048
     Dates: start: 20130423, end: 20131201
  4. METOPROLOL. [Concomitant]
     Active Substance: METOPROLOL
     Route: 065
     Dates: start: 20170726
  5. NORCO [Concomitant]
     Active Substance: ACETAMINOPHEN\HYDROCODONE BITARTRATE
     Indication: PAIN
     Route: 065
  6. PRILOSEC [Suspect]
     Active Substance: OMEPRAZOLE MAGNESIUM
     Indication: GASTROOESOPHAGEAL REFLUX DISEASE
     Route: 048
     Dates: start: 20150721, end: 20170410
  7. PROTONIX [Suspect]
     Active Substance: PANTOPRAZOLE SODIUM
     Route: 065
  8. PREVACID [Suspect]
     Active Substance: LANSOPRAZOLE
     Route: 065
  9. AMOXICILLIN. [Concomitant]
     Active Substance: AMOXICILLIN
     Indication: INFECTION
     Route: 065
     Dates: start: 20110119, end: 201711
  10. BUPROPION. [Concomitant]
     Active Substance: BUPROPION
     Indication: BLOOD CHOLESTEROL INCREASED
     Route: 065
     Dates: start: 20121119
  11. NEXIUM [Suspect]
     Active Substance: ESOMEPRAZOLE MAGNESIUM
     Route: 048
  12. PREVACID 24 HR [Suspect]
     Active Substance: LANSOPRAZOLE
     Route: 065
  13. ACIPHEX [Suspect]
     Active Substance: RABEPRAZOLE SODIUM
     Route: 065
  14. ACETAMINOPHEN. [Concomitant]
     Active Substance: ACETAMINOPHEN
     Route: 065
  15. PRILOSEC OTC [Suspect]
     Active Substance: OMEPRAZOLE MAGNESIUM
     Indication: GASTROOESOPHAGEAL REFLUX DISEASE
     Route: 048
     Dates: start: 2013, end: 2017
  16. TRAZODONE [Concomitant]
     Active Substance: TRAZODONE HYDROCHLORIDE
     Route: 065
  17. PAROXETINE. [Concomitant]
     Active Substance: PAROXETINE
     Route: 065
     Dates: start: 20160205
  18. ATORVASTATIN [Concomitant]
     Active Substance: ATORVASTATIN
     Route: 065
     Dates: start: 20121119
  19. TUMS [Concomitant]
     Active Substance: CALCIUM CARBONATE
     Route: 065
  20. DEXILANT [Suspect]
     Active Substance: DEXLANSOPRAZOLE
     Route: 065
  21. NORVASC [Concomitant]
     Active Substance: AMLODIPINE BESYLATE
     Route: 065
  22. AMLODIPINE [Concomitant]
     Active Substance: AMLODIPINE BESYLATE
     Route: 065
     Dates: start: 20110808
  23. PRILOSEC [Suspect]
     Active Substance: OMEPRAZOLE MAGNESIUM
     Indication: GASTROOESOPHAGEAL REFLUX DISEASE
     Route: 048
     Dates: start: 2013, end: 2017
  24. TYLENOL [Concomitant]
     Active Substance: ACETAMINOPHEN
     Route: 065
  25. NEXIUM 24HR [Suspect]
     Active Substance: ESOMEPRAZOLE MAGNESIUM
     Route: 048
  26. ATENOLOL. [Concomitant]
     Active Substance: ATENOLOL
     Indication: BLOOD PRESSURE MEASUREMENT
     Route: 065
     Dates: start: 20121119
  27. ALKA-SELTZER [Concomitant]
     Active Substance: ANHYDROUS CITRIC ACID\ASPIRIN\SODIUM BICARBONATE
     Route: 065
  28. IBUPROFEN. [Concomitant]
     Active Substance: IBUPROFEN
     Route: 065
  29. PRILOSEC [Suspect]
     Active Substance: OMEPRAZOLE MAGNESIUM
     Indication: GASTROOESOPHAGEAL REFLUX DISEASE
     Route: 048
     Dates: start: 20150606
  30. CYCLOBENZAPRINE. [Concomitant]
     Active Substance: CYCLOBENZAPRINE
     Indication: MUSCLE SPASMS
     Route: 065
     Dates: start: 20120824
  31. LIPITOR [Concomitant]
     Active Substance: ATORVASTATIN CALCIUM
     Route: 065

REACTIONS (7)
  - Chronic kidney disease [Not Recovered/Not Resolved]
  - Hyperparathyroidism secondary [Unknown]
  - Acute kidney injury [Unknown]
  - Nephrogenic anaemia [Unknown]
  - Renal failure [Unknown]
  - End stage renal disease [Not Recovered/Not Resolved]
  - Tubulointerstitial nephritis [Unknown]

NARRATIVE: CASE EVENT DATE: 20130205
